FAERS Safety Report 16455199 (Version 1)
Quarter: 2019Q2

REPORT INFORMATION
  Report Type: Spontaneous
  Country: US (occurrence: US)
  Receive Date: 20190619
  Receipt Date: 20190619
  Transmission Date: 20190711
  Serious: No
  Sender: FDA-Public Use
  Company Number: US-ROCHE-2290110

PATIENT
  Sex: Male
  Weight: 79.45 kg

DRUGS (10)
  1. OMEPRAZOLE. [Concomitant]
     Active Substance: OMEPRAZOLE
     Indication: ULCER
     Route: 048
  2. TRAMADOL. [Concomitant]
     Active Substance: TRAMADOL
     Route: 048
  3. AMLODIPINE BESYLATE AND BENAZEPRIL HYDROCHLORIDE [Concomitant]
     Active Substance: AMLODIPINE BESYLATE\BENAZEPRIL HYDROCHLORIDE
     Indication: HYPERTENSION
     Route: 048
  4. FINASTERIDE. [Concomitant]
     Active Substance: FINASTERIDE
     Indication: PROSTATOMEGALY
     Route: 048
  5. URSODIOL. [Concomitant]
     Active Substance: URSODIOL
     Route: 048
  6. LACTULOSE. [Concomitant]
     Active Substance: LACTULOSE
     Dosage: 10G/15MG PRN;
     Route: 065
  7. CHERATUSSIN AC [Concomitant]
     Active Substance: CODEINE PHOSPHATE\GUAIFENESIN
     Indication: FUNGAL SKIN INFECTION
  8. HYDROCORTISONE/NEOMYCIN SULFATE/POLYMYXIN B SULFATE [Concomitant]
     Active Substance: HYDROCORTISONE\NEOMYCIN SULFATE\POLYMYXIN B SULFATE
  9. ACTEMRA [Suspect]
     Active Substance: TOCILIZUMAB
     Indication: RHEUMATOID ARTHRITIS
     Route: 058
     Dates: start: 201812
  10. DICLOFENAC [Concomitant]
     Active Substance: DICLOFENAC
     Route: 061

REACTIONS (1)
  - Injection site pain [Not Recovered/Not Resolved]
